FAERS Safety Report 6241879-0 (Version None)
Quarter: 2009Q2

REPORT INFORMATION
  Report Type: 
  Country: None (occurrence: None)
  Receive Date: 20090622
  Receipt Date: 20090609
  Transmission Date: 20091009
  Serious: Yes (Death, Hospitalization, Other)
  Sender: FDA-Public Use
  Company Number: 2009-02274

PATIENT
  Age: 38 Year
  Sex: Female

DRUGS (37)
  1. VELCADE [Suspect]
     Indication: MULTIPLE MYELOMA
     Dates: start: 20080101, end: 20080101
  2. THALIDOMIDE [Suspect]
     Indication: MULTIPLE MYELOMA
     Dosage: 400 MG, ORAL;50 MG, ORAL
     Route: 048
     Dates: start: 20070727, end: 20071101
  3. THALIDOMIDE [Suspect]
     Indication: MULTIPLE MYELOMA
     Dosage: 400 MG, ORAL;50 MG, ORAL
     Route: 048
     Dates: start: 20080703, end: 20080930
  4. THALIDOMIDE [Suspect]
     Indication: MULTIPLE MYELOMA
     Dosage: 400 MG, ORAL;50 MG, ORAL
     Route: 048
     Dates: start: 20081001, end: 20090201
  5. REVLIMID [Suspect]
     Indication: MULTIPLE MYELOMA
     Dosage: 15 MG, ORAL
     Route: 048
     Dates: start: 20041001, end: 20070101
  6. REVLIMID [Suspect]
     Indication: MULTIPLE MYELOMA
     Dosage: 15 MG, ORAL
     Route: 048
     Dates: start: 20071101, end: 20080101
  7. DEXAMETHASONE TAB [Suspect]
     Indication: MULTIPLE MYELOMA
     Dosage: 40 MG, ORAL
     Route: 048
     Dates: start: 20080703, end: 20080930
  8. DEXAMETHASONE TAB [Suspect]
     Indication: MULTIPLE MYELOMA
     Dosage: 40 MG, ORAL
     Route: 048
     Dates: start: 20070701
  9. CYCLOPHOSPHAMIDE [Suspect]
     Indication: MULTIPLE MYELOMA
     Dosage: 400 MG/M2, INTRAVENOUS
     Route: 042
     Dates: start: 20080401, end: 20080101
  10. CYCLOPHOSPHAMIDE [Suspect]
     Indication: MULTIPLE MYELOMA
     Dosage: 400 MG/M2, INTRAVENOUS
     Route: 042
     Dates: start: 20080703, end: 20080930
  11. ETOPOSIDE [Suspect]
     Indication: MULTIPLE MYELOMA
     Dosage: 40 MG/M2, INTRAVENOUS
     Route: 042
     Dates: start: 20080703, end: 20080930
  12. DOXIL [Suspect]
     Indication: MULTIPLE MYELOMA
     Dosage: 40 MG/M2, INTRAVENOUS
     Route: 042
     Dates: start: 20080703, end: 20080930
  13. CISPLATIN [Suspect]
     Indication: MULTIPLE MYELOMA
     Dosage: 10 MG/M2, INTRAVENOUS
     Route: 042
     Dates: start: 20080703, end: 20080930
  14. PERIFOSINE [Concomitant]
  15. METHOTREXATE [Concomitant]
  16. SODIUM CHLORIDE [Concomitant]
  17. ARA-C [Concomitant]
  18. ASPIRIN [Concomitant]
  19. PROCHLORPERAZINE MALEATE [Concomitant]
  20. MORPHINE [Concomitant]
  21. FLUCONAZOLE [Concomitant]
  22. ACYCLOVIR [Concomitant]
  23. ZOFRAN [Concomitant]
  24. SENNA (SENNA) [Concomitant]
  25. COLACE (DOCUSATE SODIUM) [Concomitant]
  26. HYDROCODONE (HYDROCODONE) [Concomitant]
  27. MOXIFLOXACIN HCL [Concomitant]
  28. BACTRIM [Concomitant]
  29. ESOMEPRAZOLE MAGNESIUM [Concomitant]
  30. LISINOPRIL [Concomitant]
  31. COMPAZINE [Concomitant]
  32. VICODIN [Concomitant]
  33. LEUCOVORIN CALCIUM [Concomitant]
  34. ORAMORPH SR [Concomitant]
  35. ATIVAN [Concomitant]
  36. NEULASTA [Concomitant]
  37. COMPAZINE [Concomitant]

REACTIONS (26)
  - ACUTE RESPIRATORY FAILURE [None]
  - BRADYCARDIA [None]
  - CARDIAC TAMPONADE [None]
  - CHEST PAIN [None]
  - DYSPNOEA [None]
  - EJECTION FRACTION DECREASED [None]
  - EXOPHTHALMOS [None]
  - EYE PAIN [None]
  - EYELID PTOSIS [None]
  - HYPOTENSION [None]
  - LEUKOPENIA [None]
  - LYMPHADENOPATHY [None]
  - MALIGNANT NEOPLASM PROGRESSION [None]
  - MASS [None]
  - MULTIPLE MYELOMA [None]
  - MUSCLE MASS [None]
  - OPTIC NERVE DISORDER [None]
  - PANCYTOPENIA [None]
  - PLEURAL EFFUSION [None]
  - PLEURAL FIBROSIS [None]
  - PNEUMONIA PNEUMOCOCCAL [None]
  - PNEUMONIA STREPTOCOCCAL [None]
  - PRODUCTIVE COUGH [None]
  - PULMONARY OEDEMA [None]
  - RESPIRATORY ACIDOSIS [None]
  - SALIVARY GLAND MASS [None]
